FAERS Safety Report 4693699-6 (Version None)
Quarter: 2005Q2

REPORT INFORMATION
  Report Type: 
  Country: None (occurrence: None)
  Receive Date: 20050615
  Receipt Date: 20050602
  Transmission Date: 20051028
  Serious: Yes (Other)
  Sender: FDA-Public Use
  Company Number: 2005085537

PATIENT
  Sex: Male

DRUGS (1)
  1. NEURONTIN [Suspect]
     Indication: ILL-DEFINED DISORDER

REACTIONS (14)
  - ANOREXIA [None]
  - ARTHRALGIA [None]
  - BLINDNESS UNILATERAL [None]
  - CEREBROVASCULAR ACCIDENT [None]
  - CYST [None]
  - DISCOMFORT [None]
  - EMOTIONAL DISTRESS [None]
  - GAIT DISTURBANCE [None]
  - LOSS OF CONSCIOUSNESS [None]
  - MALAISE [None]
  - PAIN IN JAW [None]
  - SPEECH DISORDER [None]
  - TINNITUS [None]
  - WRONG DRUG ADMINISTERED [None]
